FAERS Safety Report 4705992-9 (Version None)
Quarter: 2005Q2

REPORT INFORMATION
  Report Type: 
  Country: None (occurrence: None)
  Receive Date: 20050629
  Receipt Date: 20050617
  Transmission Date: 20051028
  Serious: Yes (Other)
  Sender: FDA-Public Use
  Company Number: 2005089864

PATIENT
  Sex: Male

DRUGS (1)
  1. VIAGRA [Suspect]
     Indication: ERECTILE DYSFUNCTION
     Dosage: 50 MG (50 MG), ORAL
     Route: 048
     Dates: start: 20040101

REACTIONS (3)
  - DRUG EFFECT DECREASED [None]
  - DYSPHONIA [None]
  - THERAPEUTIC RESPONSE UNEXPECTED [None]
